FAERS Safety Report 6184178-8 (Version None)
Quarter: 2009Q2

REPORT INFORMATION
  Report Type: 
  Country: None (occurrence: None)
  Receive Date: 20090506
  Receipt Date: 20090506
  Transmission Date: 20091009
  Serious: No
  Sender: FDA-Public Use
  Company Number: None

PATIENT
  Sex: Female
  Weight: 104.3273 kg

DRUGS (1)
  1. COMBIGAN [Suspect]
     Indication: GLAUCOMA
     Dosage: ONE DROP IN EA EYE TWO TIME DAILY INTRAOCULAR OVER 1 YR
     Route: 031
     Dates: start: 20080301, end: 20090504

REACTIONS (4)
  - EYE PAIN [None]
  - EYE SWELLING [None]
  - OCULAR DISCOMFORT [None]
  - OCULAR HYPERAEMIA [None]
